FAERS Safety Report 7657683-2 (Version None)
Quarter: 2011Q3

REPORT INFORMATION
  Report Type: 
  Country: None (occurrence: None)
  Receive Date: 20110804
  Receipt Date: 20110729
  Transmission Date: 20111222
  Serious: Yes (Disabling, Other)
  Sender: FDA-Public Use
  Company Number: US-GENENTECH-318736

PATIENT
  Sex: Male

DRUGS (7)
  1. RANIBIZUMAB [Suspect]
     Dosage: UNK
     Route: 031
     Dates: start: 20110519, end: 20110519
  2. KEFLEX [Concomitant]
     Indication: PRODUCT USED FOR UNKNOWN INDICATION
     Dosage: 500 MG, QID
     Route: 048
  3. LISINOPRIL AND HYDROCHLOROTHIAZIDE [Concomitant]
     Indication: PRODUCT USED FOR UNKNOWN INDICATION
     Dosage: UNK
     Route: 048
  4. ALBUTEROL SULFATE AUTOHALER [Concomitant]
     Indication: PRODUCT USED FOR UNKNOWN INDICATION
     Dosage: 2 PUFF, BID
  5. RANIBIZUMAB [Suspect]
     Indication: DIABETIC RETINOPATHY
     Dosage: UNK
     Dates: start: 20101013
  6. RANIBIZUMAB [Suspect]
     Dosage: UNK
     Route: 031
     Dates: start: 20110304
  7. GLYBURIDE [Concomitant]
     Indication: DIABETES MELLITUS
     Dosage: 10 MG, BID

REACTIONS (1)
  - RETINAL DETACHMENT [None]
